FAERS Safety Report 20353302 (Version 1)
Quarter: 2022Q1

REPORT INFORMATION
  Report Type: Spontaneous
  Country: US (occurrence: US)
  Receive Date: 20220119
  Receipt Date: 20220119
  Transmission Date: 20220423
  Serious: No
  Sender: FDA-Public Use
  Company Number: US-GILEAD-2022-0565840

PATIENT
  Sex: Female

DRUGS (1)
  1. BIKTARVY [Suspect]
     Active Substance: BICTEGRAVIR SODIUM\EMTRICITABINE\TENOFOVIR ALAFENAMIDE FUMARATE
     Indication: Product used for unknown indication
     Route: 065

REACTIONS (11)
  - Weight increased [Not Recovered/Not Resolved]
  - Renal cyst [Unknown]
  - Cholelithiasis [Unknown]
  - Hernia [Unknown]
  - Palpitations [Recovering/Resolving]
  - Dizziness [Recovering/Resolving]
  - Fatigue [Recovering/Resolving]
  - Back pain [Recovering/Resolving]
  - Dyspnoea [Recovering/Resolving]
  - Faeces pale [Recovering/Resolving]
  - Lipodystrophy acquired [Recovering/Resolving]
